FAERS Safety Report 7258801-0 (Version None)
Quarter: 2011Q1

REPORT INFORMATION
  Report Type: 
  Country: None (occurrence: None)
  Receive Date: 20110129
  Receipt Date: 20100527
  Transmission Date: 20110831
  Serious: Yes (Other)
  Sender: FDA-Public Use
  Company Number: US-ABBOTT-10P-163-0647594-00

PATIENT
  Sex: Male

DRUGS (3)
  1. HUMIRA [Suspect]
     Indication: PSORIASIS
     Route: 058
     Dates: start: 20081101, end: 20100527
  2. HYDROXYUREA [Concomitant]
     Indication: PSORIASIS
  3. HUMIRA [Suspect]
     Indication: PSORIASIS
     Route: 058
     Dates: start: 20060201, end: 20081101

REACTIONS (3)
  - MUCOEPIDERMOID CARCINOMA [None]
  - DRUG DOSE OMISSION [None]
  - OROPHARYNGEAL PAIN [None]
